FAERS Safety Report 7324467-4 (Version None)
Quarter: 2011Q1

REPORT INFORMATION
  Report Type: 
  Country: None (occurrence: None)
  Receive Date: 20110203
  Receipt Date: 20100217
  Transmission Date: 20110831
  Serious: Yes (Hospitalization)
  Sender: FDA-Public Use
  Company Number: 007251

PATIENT

DRUGS (4)
  1. ACETAMINOPHEN [Suspect]
  2. KEPPRA [Suspect]
     Dosage: 1500 MG ORAL, 1000 MG ORAL
     Route: 048
  3. KEPPRA [Suspect]
     Dosage: INTRAVENOUS
     Route: 042
  4. PHENYTOIN [Suspect]

REACTIONS (1)
  - GRAND MAL CONVULSION [None]
